FAERS Safety Report 4737695-9 (Version None)
Quarter: 2005Q3

REPORT INFORMATION
  Report Type: 
  Country: None (occurrence: None)
  Receive Date: 20050809
  Receipt Date: 20050615
  Transmission Date: 20060218
  Serious: No
  Sender: FDA-Public Use
  Company Number: US-GLAXOSMITHKLINE-A0562771A

PATIENT
  Age: 62 Year
  Sex: Female

DRUGS (2)
  1. COMMIT [Suspect]
     Dates: start: 20050526
  2. RISPERDAL [Concomitant]

REACTIONS (3)
  - DRUG ADMINISTRATION ERROR [None]
  - GINGIVAL EROSION [None]
  - GINGIVAL PAIN [None]
